FAERS Safety Report 22290508 (Version 1)
Quarter: 2023Q2

REPORT INFORMATION
  Report Type: Spontaneous
  Country: CN (occurrence: None)
  Receive Date: 20230505
  Receipt Date: 20230505
  Transmission Date: 20230721
  Serious: Yes (Hospitalization)
  Sender: FDA-Public Use
  Company Number: 2023A096805

PATIENT

DRUGS (1)
  1. SYMBICORT [Suspect]
     Active Substance: BUDESONIDE\FORMOTEROL FUMARATE DIHYDRATE
     Indication: Asthma
     Dosage: 160 UG, FORMOTEROL FUMARATE 4.5 UG, 60 INHALATIONS PER VIAL UNKNOWN
     Route: 055

REACTIONS (2)
  - Asthma [Recovered/Resolved]
  - Device malfunction [Unknown]
